FAERS Safety Report 7427306-6 (Version None)
Quarter: 2011Q2

REPORT INFORMATION
  Report Type: 
  Country: None (occurrence: None)
  Receive Date: 20110420
  Receipt Date: 20110415
  Transmission Date: 20111010
  Serious: No
  Sender: FDA-Public Use
  Company Number: US-PFIZER INC-2011083581

PATIENT
  Sex: Female
  Weight: 104 kg

DRUGS (5)
  1. CYMBALTA [Concomitant]
     Dosage: UNK
  2. CLINDAMYCIN [Suspect]
     Dosage: 300 MG, UNK
     Route: 048
     Dates: start: 20110401, end: 20110401
  3. CLEOCIN [Suspect]
     Indication: ANTIBIOTIC THERAPY
     Dosage: UNK
     Route: 042
     Dates: start: 20110329, end: 20110330
  4. LYRICA [Concomitant]
     Dosage: UNK
  5. CLINDAMYCIN [Suspect]
     Indication: ANTIBIOTIC THERAPY
     Dosage: 600 MG, 3X/DAY
     Route: 048
     Dates: start: 20110401, end: 20110409

REACTIONS (9)
  - LIMB DISCOMFORT [None]
  - SKIN ODOUR ABNORMAL [None]
  - HAEMATOCRIT ABNORMAL [None]
  - NAUSEA [None]
  - HAEMOGLOBIN DECREASED [None]
  - WEIGHT DECREASED [None]
  - PAROSMIA [None]
  - OEDEMA PERIPHERAL [None]
  - DYSGEUSIA [None]
